FAERS Safety Report 10912382 (Version 1)
Quarter: 2015Q1

REPORT INFORMATION
  Report Type: Spontaneous
  Country: US (occurrence: US)
  Receive Date: 20150313
  Receipt Date: 20150313
  Transmission Date: 20150721
  Serious: No
  Sender: FDA-Public Use
  Company Number: US-DRREDDYS-USA/USA/15/0045975

PATIENT
  Age: 66 Year
  Sex: Female

DRUGS (2)
  1. ROPINIROLE HYDROCHLORIDE XR 2 MG, 4 MG, 6 MG, 8 MG AND 12 MG TABLETS [Suspect]
     Active Substance: ROPINIROLE HYDROCHLORIDE
     Indication: PARKINSON^S DISEASE
     Route: 065
  2. CARBIDOPA/LEVODOPA [Suspect]
     Active Substance: CARBIDOPA\LEVODOPA
     Indication: PARKINSON^S DISEASE
     Dosage: 25/100

REACTIONS (1)
  - Hallucination, visual [Recovering/Resolving]
